FAERS Safety Report 12609855 (Version 1)
Quarter: 2016Q3

REPORT INFORMATION
  Report Type: Report from Study
  Country: US (occurrence: US)
  Receive Date: 20160801
  Receipt Date: 20160801
  Transmission Date: 20161109
  Serious: No
  Sender: FDA-Public Use
  Company Number: US-AMGEN-USASP2016097552

PATIENT
  Age: 61 Year
  Sex: Female

DRUGS (1)
  1. ENBREL [Suspect]
     Active Substance: ETANERCEPT
     Indication: PRODUCT USED FOR UNKNOWN INDICATION
     Dosage: UNK
     Route: 065

REACTIONS (14)
  - Tenderness [Unknown]
  - Joint injury [Unknown]
  - Muscular weakness [Unknown]
  - Dizziness [Unknown]
  - Carpal tunnel syndrome [Unknown]
  - Gait disturbance [Unknown]
  - Injection site urticaria [Recovered/Resolved]
  - Feeling hot [Unknown]
  - Injection site haemorrhage [Unknown]
  - Musculoskeletal disorder [Not Recovered/Not Resolved]
  - Dysphemia [Unknown]
  - Fatigue [Unknown]
  - Nausea [Unknown]
  - Musculoskeletal stiffness [Unknown]
